FAERS Safety Report 19242353 (Version 1)
Quarter: 2021Q2

REPORT INFORMATION
  Report Type: Spontaneous
  Country: DE (occurrence: DE)
  Receive Date: 20210510
  Receipt Date: 20210510
  Transmission Date: 20210717
  Serious: Yes (Other)
  Sender: FDA-Public Use
  Company Number: DE-009507513-2105DEU001973

PATIENT
  Sex: Female

DRUGS (2)
  1. TAFLUPROST [Suspect]
     Active Substance: TAFLUPROST
     Indication: GLAUCOMA
     Dosage: UNK
     Route: 047
  2. DORZOLAMIDE HYDROCHLORIDE. [Suspect]
     Active Substance: DORZOLAMIDE HYDROCHLORIDE
     Indication: GLAUCOMA
     Dosage: UNK
     Route: 047

REACTIONS (4)
  - Therapy cessation [Unknown]
  - Ocular hyperaemia [Not Recovered/Not Resolved]
  - Eye swelling [Not Recovered/Not Resolved]
  - Glaucoma [Recovered/Resolved]

NARRATIVE: CASE EVENT DATE: 2021
